FAERS Safety Report 4811783-0 (Version None)
Quarter: 2005Q4

REPORT INFORMATION
  Report Type: 
  Country: None (occurrence: None)
  Receive Date: 20051027
  Receipt Date: 20051027
  Transmission Date: 20060501
  Serious: Yes (Hospitalization)
  Sender: FDA-Public Use
  Company Number: None

PATIENT
  Age: 66 Year
  Sex: Male
  Weight: 78.2 kg

DRUGS (16)
  1. WARFARIN [Suspect]
     Indication: ATRIAL FIBRILLATION
     Dosage: 4.5MG,4.5MG DA, ORAL
     Route: 048
     Dates: start: 20050715
  2. TERAZOSIN [Concomitant]
  3. COUMADIN [Concomitant]
  4. METOPROLOL [Concomitant]
  5. HYDROXYZINE PAMOATE [Concomitant]
  6. ACETYLCYSTEINE [Concomitant]
  7. IPRATROPIUM BROMIDE [Concomitant]
  8. IPRATROPIUM INHALANT [Concomitant]
  9. AMIODARONE HCL [Concomitant]
  10. OMEPRAZOLE SA [Concomitant]
  11. ASPIRIN [Concomitant]
  12. TEMAZEPAM [Concomitant]
  13. NITROGLYCERIN [Concomitant]
  14. DIPHENHYDRAMINE HCL [Concomitant]
  15. ALBUTEROL [Concomitant]
  16. ACETAMINOPHEN [Concomitant]

REACTIONS (2)
  - INTERNATIONAL NORMALISED RATIO INCREASED [None]
  - PERITONEAL HAEMORRHAGE [None]
